FAERS Safety Report 17713344 (Version 1)
Quarter: 2020Q2

REPORT INFORMATION
  Report Type: Spontaneous
  Country: US (occurrence: US)
  Receive Date: 20200427
  Receipt Date: 20200427
  Transmission Date: 20200714
  Serious: No
  Sender: FDA-Public Use
  Company Number: US-ROCHE-2550940

PATIENT
  Age: 70 Year
  Sex: Female

DRUGS (1)
  1. XOFLUZA [Suspect]
     Active Substance: BALOXAVIR MARBOXIL
     Indication: INFLUENZA
     Dosage: (TWO 20 MG)
     Route: 048
     Dates: start: 20200209, end: 20200209

REACTIONS (2)
  - Swelling of eyelid [Unknown]
  - Lip swelling [Unknown]

NARRATIVE: CASE EVENT DATE: 20200209
